FAERS Safety Report 11519958 (Version 1)
Quarter: 2015Q3

REPORT INFORMATION
  Report Type: Spontaneous
  Country: US (occurrence: US)
  Receive Date: 20150918
  Receipt Date: 20150918
  Transmission Date: 20151125
  Serious: No
  Sender: FDA-Public Use
  Company Number: US-RB-067698-14

PATIENT

DRUGS (1)
  1. MUCINEX [Suspect]
     Active Substance: GUAIFENESIN
     Indication: CHRONIC OBSTRUCTIVE PULMONARY DISEASE
     Dosage: 600MG. PRODUCT LAST USED ON: 25/JUL/2014; DOSING: 1 TABLET EVERY 8-12 HOURS.,FREQUENCY UNK
     Route: 048
     Dates: start: 2010

REACTIONS (3)
  - Incorrect drug administration duration [Not Recovered/Not Resolved]
  - Product use issue [Not Recovered/Not Resolved]
  - Eye swelling [Not Recovered/Not Resolved]
